FAERS Safety Report 6354375-7 (Version None)
Quarter: 2009Q3

REPORT INFORMATION
  Report Type: 
  Country: None (occurrence: None)
  Receive Date: 20090914
  Receipt Date: 20090902
  Transmission Date: 20100115
  Serious: Yes (Hospitalization)
  Sender: FDA-Public Use
  Company Number: US-BIOGENIDEC-2008BI025457

PATIENT
  Age: 74 Year
  Sex: Female
  Weight: 58 kg

DRUGS (3)
  1. AVONEX [Suspect]
     Indication: MULTIPLE SCLEROSIS
     Route: 030
     Dates: start: 20030101, end: 20050101
  2. AVONEX [Suspect]
     Route: 030
     Dates: start: 20080911
  3. COUMADIN [Concomitant]

REACTIONS (10)
  - DYSPNOEA [None]
  - FALL [None]
  - FATIGUE [None]
  - HEAD INJURY [None]
  - INFLUENZA LIKE ILLNESS [None]
  - JOINT SWELLING [None]
  - LOSS OF CONSCIOUSNESS [None]
  - MYOCARDIAL INFARCTION [None]
  - SKIN LACERATION [None]
  - TRANSIENT ISCHAEMIC ATTACK [None]
